FAERS Safety Report 5659990-1 (Version None)
Quarter: 2008Q1

REPORT INFORMATION
  Report Type: 
  Country: None (occurrence: None)
  Receive Date: 20080306
  Receipt Date: 20080220
  Transmission Date: 20080703
  Serious: No
  Sender: FDA-Public Use
  Company Number: US022846

PATIENT
  Age: 51 Year
  Sex: Female

DRUGS (3)
  1. FENTORA [Suspect]
     Indication: BACK PAIN
     Dosage: 800 UG BUCCAL
     Route: 002
     Dates: start: 20070222
  2. OXYCODONE HCL [Concomitant]
  3. XANAX [Concomitant]

REACTIONS (2)
  - DRUG INEFFECTIVE [None]
  - MEDICATION ERROR [None]
